FAERS Safety Report 23766389 (Version 2)
Quarter: 2025Q1

REPORT INFORMATION
  Report Type: Spontaneous
  Country: GB (occurrence: GB)
  Receive Date: 20240422
  Receipt Date: 20250227
  Transmission Date: 20250408
  Serious: Yes (Hospitalization, Other)
  Sender: INTERCEPT PHARMACEUTICALS
  Company Number: GB-ADVANZ PHARMA-202404003177

PATIENT
  Sex: Female

DRUGS (1)
  1. OCALIVA [Suspect]
     Active Substance: OBETICHOLIC ACID
     Indication: Primary biliary cholangitis
     Route: 048

REACTIONS (7)
  - Hospitalisation [Unknown]
  - Accident [Recovered/Resolved]
  - Head injury [Recovered/Resolved]
  - Hip deformity [Recovered/Resolved]
  - Fall [Recovered/Resolved]
  - Product dose omission issue [Unknown]
  - Product use issue [Recovered/Resolved]

NARRATIVE: CASE EVENT DATE: 20241001
